APPROVED DRUG PRODUCT: DULOXETINE HYDROCHLORIDE
Active Ingredient: DULOXETINE HYDROCHLORIDE
Strength: EQ 40MG BASE
Dosage Form/Route: CAPSULE, DELAYED REL PELLETS;ORAL
Application: A208706 | Product #004 | TE Code: AB
Applicant: AJANTA PHARMA LTD
Approved: Mar 11, 2019 | RLD: No | RS: No | Type: RX